FAERS Safety Report 4309084-2 (Version None)
Quarter: 2004Q1

REPORT INFORMATION
  Report Type: 
  Country: None (occurrence: None)
  Receive Date: 20040302
  Receipt Date: 20030826
  Transmission Date: 20041129
  Serious: Yes (Hospitalization)
  Sender: FDA-Public Use
  Company Number: US-GLAXOSMITHKLINE-A0423616A

PATIENT
  Age: 77 Year
  Sex: Female

DRUGS (5)
  1. ADVAIR DISKUS 100/50 [Suspect]
     Indication: CHRONIC OBSTRUCTIVE AIRWAYS DISEASE
     Dosage: 1PUFF TWICE PER DAY
     Route: 055
     Dates: start: 20030714, end: 20030720
  2. ACIPHEX [Concomitant]
  3. LEVAQUIN [Concomitant]
  4. URSO [Concomitant]
  5. CLINDAMYCIN [Concomitant]

REACTIONS (4)
  - DEVICE FAILURE [None]
  - HOARSENESS [None]
  - LYMPHADENOPATHY [None]
  - PHARMACEUTICAL PRODUCT COMPLAINT [None]
